FAERS Safety Report 11604530 (Version 1)
Quarter: 2015Q4

REPORT INFORMATION
  Report Type: Spontaneous
  Country: US (occurrence: None)
  Receive Date: 20151006
  Receipt Date: 20151006
  Transmission Date: 20160304
  Serious: Yes (Other)
  Sender: FDA-Public Use
  Company Number: None

PATIENT
  Age: 73 Year
  Sex: Female
  Weight: 83.92 kg

DRUGS (9)
  1. VITAMIN [Concomitant]
     Active Substance: VITAMINS
  2. OMEPROZOLE [Concomitant]
     Active Substance: OMEPRAZOLE
  3. COUMADIN [Concomitant]
     Active Substance: WARFARIN SODIUM
  4. GABAPENTIN. [Concomitant]
     Active Substance: GABAPENTIN
  5. BACLOFEN. [Suspect]
     Active Substance: BACLOFEN
     Indication: MUSCLE SPASMS
     Dosage: 10 MG ?#30?ONE TABLET TWO TO THREE TIMES DAILY?PO (BY MOUTH)
     Route: 048
  6. SOTALOL. [Concomitant]
     Active Substance: SOTALOL
  7. CELEBREX [Concomitant]
     Active Substance: CELECOXIB
  8. TOPROL XL [Concomitant]
     Active Substance: METOPROLOL SUCCINATE
  9. RX MAGNESIUM [Concomitant]

REACTIONS (11)
  - Back pain [None]
  - Arthralgia [None]
  - Fatigue [None]
  - Balance disorder [None]
  - Musculoskeletal pain [None]
  - Somnolence [None]
  - Movement disorder [None]
  - Dyskinesia [None]
  - Urticaria [None]
  - Peripheral swelling [None]
  - Gait disturbance [None]

NARRATIVE: CASE EVENT DATE: 20150914
